FAERS Safety Report 9983731 (Version 3)
Quarter: 2014Q2

REPORT INFORMATION
  Report Type: Spontaneous
  Country: US (occurrence: US)
  Receive Date: 20140307
  Receipt Date: 20140502
  Transmission Date: 20141212
  Serious: Yes (Hospitalization, Disabling, Other)
  Sender: FDA-Public Use
  Company Number: US-BAYER-2014-032665

PATIENT
  Age: 82 Year
  Sex: Female

DRUGS (1)
  1. AVELOX [Suspect]
     Indication: PRODUCT USED FOR UNKNOWN INDICATION
     Dosage: 400 MG, QD
     Route: 048
     Dates: start: 201301, end: 2013

REACTIONS (15)
  - Cardiac failure [None]
  - Abasia [None]
  - Pain in extremity [None]
  - Plasma cell myeloma [None]
  - Chills [Not Recovered/Not Resolved]
  - Muscular weakness [None]
  - Muscular weakness [None]
  - Dizziness [None]
  - Hallucination, visual [None]
  - Peripheral swelling [None]
  - Depression [None]
  - Paranoia [None]
  - Nightmare [None]
  - Insomnia [None]
  - Malaise [None]
